FAERS Safety Report 14297035 (Version 1)
Quarter: 2017Q4

REPORT INFORMATION
  Report Type: Spontaneous
  Country: FR (occurrence: FR)
  Receive Date: 20171218
  Receipt Date: 20171218
  Transmission Date: 20180321
  Serious: Yes (Other)
  Sender: FDA-Public Use
  Company Number: FR-GLAXOSMITHKLINE-FR2017GSK193483

PATIENT
  Age: 61 Year
  Sex: Male

DRUGS (2)
  1. NICOPATCH [Suspect]
     Active Substance: NICOTINE
     Indication: SMOKING CESSATION THERAPY
     Dosage: 2 DF, QD, 21 MG/24 H, 1/DAY
     Route: 062
     Dates: start: 201712
  2. NICOPASS [Suspect]
     Active Substance: NICOTINE
     Indication: SMOKING CESSATION THERAPY
     Dosage: UNK, 1,5 MG LOZENGE
     Route: 048
     Dates: start: 201712

REACTIONS (4)
  - Overdose [Unknown]
  - Nicotine dependence [Unknown]
  - Dizziness [Unknown]
  - Tachycardia [Unknown]
